FAERS Safety Report 23322539 (Version 1)
Quarter: 2023Q4

REPORT INFORMATION
  Report Type: Spontaneous
  Country: US (occurrence: US)
  Receive Date: 20231220
  Receipt Date: 20231220
  Transmission Date: 20240110
  Serious: No
  Sender: FDA-Public Use
  Company Number: US-GALDERMA-US2023015635

PATIENT

DRUGS (9)
  1. PROACTIV MD ADAPALENE ACNE TREATMENT [Suspect]
     Active Substance: ADAPALENE
     Indication: Acne cystic
     Dosage: 1 DOSAGE FORM, QD
     Route: 061
     Dates: start: 202307
  2. Proactiv MD Ultra Gentle Cleanser [Concomitant]
     Indication: Acne cystic
     Dosage: 1 DOSAGE FORM, BID
     Route: 061
     Dates: start: 202307
  3. Proactiv MD Ultra Hydrating Moisturizer [Concomitant]
     Indication: Acne cystic
     Dosage: 1 DOSAGE FORM, BID
     Route: 061
     Dates: start: 202307
  4. COSMETICS [Concomitant]
     Active Substance: COSMETICS
     Indication: Acne cystic
     Dosage: 1 DOSAGE FORM, BID
     Route: 061
     Dates: start: 202307
  5. PROACTIV CLARIFYING NIGHT ACNE TREATMENT [Concomitant]
     Active Substance: SALICYLIC ACID
     Indication: Acne cystic
     Dosage: 1 DOSAGE FORM, BID
     Route: 061
     Dates: start: 202307
  6. PROACTIV ACNE BODY WASH [Concomitant]
     Active Substance: SALICYLIC ACID
     Indication: Acne cystic
     Dosage: 1 DOSAGE FORM, BID
     Route: 061
     Dates: start: 202307
  7. PROACTIV BLACKHEAD DISSOLVING [Concomitant]
     Active Substance: SALICYLIC ACID
     Indication: Acne cystic
     Dosage: 1 DOSAGE FORM, BID
     Route: 061
     Dates: start: 202307
  8. PROACTIV SKIN PURIFYING MASK [Concomitant]
     Active Substance: SULFUR
     Indication: Acne cystic
     Dosage: 1 DOSAGE FORM, BID
     Route: 061
     Dates: start: 202307
  9. Proactiv Zits Happen Patches [Concomitant]
     Indication: Acne cystic
     Dosage: 1 DOSAGE FORM, BID
     Route: 061
     Dates: start: 202307

REACTIONS (6)
  - Dry skin [Unknown]
  - Skin tightness [Unknown]
  - Drug ineffective for unapproved indication [Recovered/Resolved]
  - Product use in unapproved indication [Recovered/Resolved]
  - Inappropriate schedule of product administration [Recovered/Resolved]
  - Underdose [Recovered/Resolved]

NARRATIVE: CASE EVENT DATE: 20230101
